FAERS Safety Report 16076817 (Version 1)
Quarter: 2019Q1

REPORT INFORMATION
  Report Type: Spontaneous
  Country: US (occurrence: US)
  Receive Date: 20190213
  Receipt Date: 20190213
  Transmission Date: 20190418
  Serious: No
  Sender: FDA-Public Use
  Company Number: None

PATIENT
  Age: 55 Year
  Sex: Male
  Weight: 89.36 kg

DRUGS (1)
  1. TRAMADOL. [Suspect]
     Active Substance: TRAMADOL
     Indication: PAIN
     Route: 048
     Dates: start: 20070601, end: 20100719

REACTIONS (12)
  - Unresponsive to stimuli [None]
  - Confusional state [None]
  - Salivary hypersecretion [None]
  - Status epilepticus [None]
  - Leukocytosis [None]
  - Rhabdomyolysis [None]
  - Seizure [None]
  - Gait disturbance [None]
  - Postictal state [None]
  - Staring [None]
  - Aggression [None]
  - Lactic acidosis [None]

NARRATIVE: CASE EVENT DATE: 20100719
